FAERS Safety Report 6382941-1 (Version None)
Quarter: 2009Q3

REPORT INFORMATION
  Report Type: 
  Country: None (occurrence: None)
  Receive Date: 20090930
  Receipt Date: 20090917
  Transmission Date: 20100115
  Serious: Yes (Hospitalization)
  Sender: FDA-Public Use
  Company Number: FR-PFIZER INC-2009270808

PATIENT
  Age: 75 Year

DRUGS (11)
  1. ALDACTONE [Suspect]
     Dosage: UNK
     Route: 048
     Dates: start: 20060101
  2. METFORMIN HCL [Suspect]
     Dosage: 500 MG, 2X/DAY
     Route: 048
     Dates: start: 20060101
  3. ROVAMYCINE [Suspect]
     Indication: LUNG DISORDER
     Dosage: UNK
     Dates: start: 20090601, end: 20090625
  4. LASILIX [Suspect]
     Indication: CARDIAC FAILURE
     Dosage: 500 MG MORNING AND 250 MG AFTERNOON
     Route: 048
     Dates: start: 20060101
  5. PREVISCAN [Suspect]
     Indication: THROMBOSIS PROPHYLAXIS
     Dosage: 20 MG, UNK
     Route: 048
     Dates: start: 20060101
  6. CARDENSIEL [Suspect]
     Indication: CARDIAC FAILURE
     Dosage: 2.5 MG, 1X/DAY
     Route: 048
     Dates: start: 20060101
  7. AMIODARONE [Suspect]
     Indication: ATRIAL FIBRILLATION
     Dosage: 100 MG, 1X/DAY
     Route: 048
     Dates: start: 20060101
  8. TRIATEC [Suspect]
     Indication: CARDIAC FAILURE
     Dosage: 5 MG, 2X/DAY
     Route: 048
     Dates: start: 20060101
  9. LEVOTHYROXINE SODIUM [Suspect]
     Indication: HYPOTHYROIDISM
     Dosage: 150 UG, 1X/DAY
     Route: 048
     Dates: start: 20060101
  10. OMEPRAZOLE [Suspect]
     Dosage: 20 MG, 1X/DAY
     Route: 048
     Dates: start: 20060101
  11. LANTUS [Suspect]
     Indication: TYPE 2 DIABETES MELLITUS
     Dosage: UNK
     Route: 058

REACTIONS (1)
  - PURPURA [None]
